FAERS Safety Report 8416433-2 (Version None)
Quarter: 2012Q2

REPORT INFORMATION
  Report Type: 
  Country: None (occurrence: None)
  Receive Date: 20120606
  Receipt Date: 20120529
  Transmission Date: 20120825
  Serious: Yes (Other)
  Sender: FDA-Public Use
  Company Number: US-BAYER-200913782NA

PATIENT
  Age: 44 Year
  Sex: Female
  Weight: 78 kg

DRUGS (7)
  1. LYRICA [Concomitant]
     Route: 048
  2. TYLENOL W/ CODEINE NO. 3 [Concomitant]
     Route: 048
  3. GEMZAR [Suspect]
     Indication: BREAST CANCER METASTATIC
     Dosage: DAYS 1 AND 8 OF EACH 21 DAY CYCLE
     Route: 042
     Dates: start: 20090105, end: 20090202
  4. FRAGMIN [Concomitant]
     Route: 058
  5. SORAFENIB (RAF KINASE INHIBITOR) [Suspect]
     Indication: BREAST CANCER METASTATIC
     Route: 048
     Dates: start: 20090105, end: 20090216
  6. COMPAZINE [Concomitant]
     Route: 048
  7. FENTANYL [Concomitant]
     Route: 061

REACTIONS (1)
  - DEEP VEIN THROMBOSIS [None]
